FAERS Safety Report 24194383 (Version 1)
Quarter: 2024Q3

REPORT INFORMATION
  Report Type: Spontaneous
  Country: US (occurrence: None)
  Receive Date: 20240808
  Receipt Date: 20240808
  Transmission Date: 20241016
  Serious: Yes (Other)
  Sender: Public
  Company Number: None

PATIENT
  Age: 72 Year
  Sex: Female

DRUGS (1)
  1. HUMIRA [Suspect]
     Active Substance: ADALIMUMAB

REACTIONS (10)
  - Blood pressure increased [None]
  - Lung disorder [None]
  - Fall [None]
  - Head injury [None]
  - Tooth injury [None]
  - Temporomandibular pain and dysfunction syndrome [None]
  - Headache [None]
  - Drug ineffective [None]
  - Pneumonia [None]
  - SARS-CoV-2 test positive [None]
